FAERS Safety Report 15752941 (Version 1)
Quarter: 2018Q4

REPORT INFORMATION
  Report Type: Spontaneous
  Country: DK (occurrence: DK)
  Receive Date: 20181221
  Receipt Date: 20181221
  Transmission Date: 20190205
  Serious: Yes (Hospitalization, Other)
  Sender: FDA-Public Use
  Company Number: DK-OTSUKA-2016_025250

PATIENT
  Age: 37 Year
  Sex: Female
  Weight: 74 kg

DRUGS (11)
  1. ABILIFY MAINTENA [Suspect]
     Active Substance: ARIPIPRAZOLE
     Indication: SCHIZOPHRENIA
     Dosage: 300 MG, QM
     Route: 030
     Dates: start: 20150126, end: 20150322
  2. ABILIFY MAINTENA [Suspect]
     Active Substance: ARIPIPRAZOLE
     Indication: ANXIETY
  3. ABILIFY [Suspect]
     Active Substance: ARIPIPRAZOLE
     Indication: SCHIZOPHRENIA
     Dosage: 5 MG, QD
     Route: 048
     Dates: start: 20070202, end: 20070227
  4. ABILIFY [Suspect]
     Active Substance: ARIPIPRAZOLE
     Dosage: 5 MG, QD
     Route: 048
     Dates: start: 20150115, end: 20160117
  5. OXAPAX [Concomitant]
     Active Substance: OXAZEPAM
     Indication: ANXIETY
  6. OXAPAX [Concomitant]
     Active Substance: OXAZEPAM
     Indication: AGITATION
  7. ABILIFY MAINTENA [Suspect]
     Active Substance: ARIPIPRAZOLE
     Indication: INSOMNIA
     Dosage: 300 MG, QM
     Route: 030
     Dates: start: 20150323, end: 20150420
  8. ABILIFY [Suspect]
     Active Substance: ARIPIPRAZOLE
     Dosage: 10 MG, QD
     Route: 048
     Dates: start: 20150118, end: 20150226
  9. OXAPAX [Concomitant]
     Active Substance: OXAZEPAM
     Indication: INSOMNIA
     Dosage: 5 MG, QWK
     Route: 065
     Dates: start: 2012, end: 201508
  10. OXAPAX [Concomitant]
     Active Substance: OXAZEPAM
     Indication: MALAISE
  11. ABILIFY MAINTENA [Suspect]
     Active Substance: ARIPIPRAZOLE
     Indication: RESTLESSNESS

REACTIONS (19)
  - Chest discomfort [Unknown]
  - Suicidal ideation [Not Recovered/Not Resolved]
  - Impatience [Recovered/Resolved]
  - Negative thoughts [Recovering/Resolving]
  - Thinking abnormal [Unknown]
  - Psychotic disorder [Not Recovered/Not Resolved]
  - Social anxiety disorder [Recovered/Resolved]
  - Anxiety [Recovered/Resolved]
  - Dyskinesia [Not Recovered/Not Resolved]
  - Social avoidant behaviour [Recovered/Resolved]
  - Restlessness [Recovering/Resolving]
  - Insomnia [Recovered/Resolved]
  - Impulse-control disorder [Recovered/Resolved]
  - Angina pectoris [Recovered/Resolved]
  - Cognitive disorder [Not Recovered/Not Resolved]
  - Hallucination, auditory [Recovered/Resolved]
  - Nightmare [Unknown]
  - Irritability [Recovered/Resolved]
  - Suicide attempt [Recovered/Resolved]

NARRATIVE: CASE EVENT DATE: 2015
